FAERS Safety Report 5993335-2 (Version None)
Quarter: 2008Q4

REPORT INFORMATION
  Report Type: 
  Country: None (occurrence: None)
  Receive Date: 20081210
  Receipt Date: 20081210
  Transmission Date: 20090506
  Serious: No
  Sender: FDA-Public Use
  Company Number: None

PATIENT
  Sex: Female
  Weight: 64.09 kg

DRUGS (8)
  1. DIOVAN HCT [Suspect]
     Dosage: 1 TAB QD ORAL
     Route: 048
     Dates: start: 20080513, end: 20081209
  2. ALENDRONATE SODIUM [Concomitant]
  3. CALTRATE 600 + D (CALCIUM CARBONATE / BIT D) [Concomitant]
  4. CELLCEPT [Concomitant]
  5. CLOBETASOL PROPIONATE [Concomitant]
  6. DERMA-SMOOTHE (FLUOCINOLONE) [Concomitant]
  7. ELOCON [Concomitant]
  8. FLAX SEED OIL [Concomitant]

REACTIONS (3)
  - CONDITION AGGRAVATED [None]
  - DERMATOMYOSITIS [None]
  - PHOTOSENSITIVITY REACTION [None]
